FAERS Safety Report 15072709 (Version 5)
Quarter: 2019Q3

REPORT INFORMATION
  Report Type: Report from Study
  Country: CA (occurrence: CA)
  Receive Date: 20180627
  Receipt Date: 20190702
  Transmission Date: 20191004
  Serious: No
  Sender: FDA-Public Use
  Company Number: CA-ROCHE-2140642

PATIENT
  Age: 62 Year
  Sex: Female

DRUGS (3)
  1. FOSINOPRIL [Concomitant]
     Active Substance: FOSINOPRIL
     Indication: HYPERTENSION
     Route: 065
  2. OCREVUS [Suspect]
     Active Substance: OCRELIZUMAB
     Indication: RELAPSING-REMITTING MULTIPLE SCLEROSIS
     Dosage: 300 MG IV 2 LOADING DOSE (30 MG/ML) (300 MG AT DAY 0 + 14, THEN 600 MG EVERY 6 MONTH)
     Route: 042
     Dates: start: 20180612
  3. TRAZODONE [Concomitant]
     Active Substance: TRAZODONE HYDROCHLORIDE
     Dosage: 2 TO 3 TABLETS AS NEEDED
     Route: 065

REACTIONS (6)
  - Throat tightness [Recovered/Resolved]
  - Influenza like illness [Not Recovered/Not Resolved]
  - Infection [Unknown]
  - Nausea [Recovering/Resolving]
  - Chest discomfort [Recovered/Resolved]
  - Infusion related reaction [Not Recovered/Not Resolved]

NARRATIVE: CASE EVENT DATE: 20180612
